FAERS Safety Report 8235440-6 (Version None)
Quarter: 2012Q1

REPORT INFORMATION
  Report Type: 
  Country: None (occurrence: None)
  Receive Date: 20120322
  Receipt Date: 20111103
  Transmission Date: 20120608
  Serious: Yes (Hospitalization)
  Sender: FDA-Public Use
  Company Number: GGEL20111101432

PATIENT
  Age: 53 Year
  Sex: Female

DRUGS (9)
  1. GABAPENTIN [Suspect]
     Indication: PRODUCT USED FOR UNKNOWN INDICATION
     Dosage: 700 MILLIGRAM, 300 MG IN MORNING + NOON, 100 MG AT NIGHT   300 MG AT NOON, 100 MG AT NIGHT
  2. TRAZODONE HYDROCHLORIDE (TRAZODONE HYDROCHLORIDE) (TRAZODONE HYDROCHLO [Concomitant]
  3. SPIRONOLACTONE [Concomitant]
  4. NADOLOL (NADOLOL) (NADOLOL) [Concomitant]
  5. FERROUS SULFATE (FERROUS SULFATE) (FERROUS SULFATE) [Concomitant]
  6. OMEPRAZOLE [Concomitant]
  7. LACTULOSE (LACTULOSE) (LACTULOSE) [Concomitant]
  8. UROSODIOL (UROSODIOL) (UROSODIOL) [Concomitant]
  9. CITALOPRAM HYDROBROMIDE [Concomitant]

REACTIONS (8)
  - ANXIETY [None]
  - HEPATIC ENCEPHALOPATHY [None]
  - ABDOMINAL PAIN [None]
  - PHOTOPHOBIA [None]
  - NERVOUSNESS [None]
  - ALCOHOL WITHDRAWAL SYNDROME [None]
  - HAEMATEMESIS [None]
  - MELAENA [None]
